FAERS Safety Report 10200754 (Version 1)
Quarter: 2014Q2

REPORT INFORMATION
  Report Type: Spontaneous
  Country: US (occurrence: None)
  Receive Date: 20140523
  Receipt Date: 20140523
  Transmission Date: 20141212
  Serious: No
  Sender: FDA-Public Use
  Company Number: None

PATIENT
  Sex: Male

DRUGS (1)
  1. XARELTO 20MG JANSSEN [Suspect]
     Indication: ANTICOAGULANT THERAPY
     Dosage: ONE TABLET ONCE DAILY TAKEN BY MOUTH
     Route: 048
     Dates: start: 20131230

REACTIONS (1)
  - Diarrhoea [None]
